FAERS Safety Report 15094825 (Version 2)
Quarter: 2018Q3

REPORT INFORMATION
  Report Type: Spontaneous
  Country: DE (occurrence: DE)
  Receive Date: 20180701
  Receipt Date: 20180802
  Transmission Date: 20181010
  Serious: Yes (Death)
  Sender: FDA-Public Use
  Company Number: DE-BEH-2018092149

PATIENT
  Age: 72 Year
  Sex: Male

DRUGS (7)
  1. HAEMOCOMPLETTAN P [Suspect]
     Active Substance: FIBRINOGEN HUMAN
     Indication: PROCEDURAL HAEMORRHAGE
     Dosage: 7 G, TOT / IN TOTAL 7X
     Route: 042
     Dates: start: 20180622
  2. BERIPLEX P/N [Suspect]
     Active Substance: COAGULATION FACTOR IX HUMAN\COAGULATION FACTOR VII HUMAN\COAGULATION FACTOR X HUMAN\PROTEIN C\PROTEIN S HUMAN\PROTHROMBIN
     Indication: PROCEDURAL HAEMORRHAGE
     Dosage: 2500 IU, TOT / IN TOTAL 5X
     Route: 042
     Dates: start: 20180622
  3. SUFENTANIL [Concomitant]
     Active Substance: SUFENTANIL
     Indication: GENERAL ANAESTHESIA
     Dosage: UNK
     Route: 065
     Dates: start: 20180622
  4. SEVOFLURANE. [Concomitant]
     Active Substance: SEVOFLURANE
     Indication: GENERAL ANAESTHESIA
     Dosage: UNK
     Route: 065
     Dates: start: 20180622
  5. ENOXIMONE [Concomitant]
     Active Substance: ENOXIMONE
     Indication: CARDIOVASCULAR INSUFFICIENCY
     Dosage: UNK
     Route: 065
     Dates: start: 20180622
  6. NOREPINEPHRINE. [Concomitant]
     Active Substance: NOREPINEPHRINE
     Indication: CARDIOVASCULAR INSUFFICIENCY
     Dosage: UNK
     Route: 065
     Dates: start: 20180622
  7. ADRENALINE                         /00003901/ [Concomitant]
     Active Substance: EPINEPHRINE
     Indication: CARDIOVASCULAR INSUFFICIENCY
     Dosage: UNK
     Route: 065
     Dates: start: 20180622

REACTIONS (2)
  - Haemodynamic instability [Fatal]
  - Thrombosis [Fatal]

NARRATIVE: CASE EVENT DATE: 20180622
